FAERS Safety Report 14698918 (Version 1)
Quarter: 2018Q1

REPORT INFORMATION
  Report Type: Report from Study
  Country: PL (occurrence: PL)
  Receive Date: 20180330
  Receipt Date: 20180330
  Transmission Date: 20180509
  Serious: Yes (Hospitalization)
  Sender: FDA-Public Use
  Company Number: PL-ROCHE-1588604

PATIENT
  Age: 54 Year
  Sex: Female
  Weight: 99 kg

DRUGS (30)
  1. NO-SPA [Concomitant]
     Active Substance: DROTAVERINE HYDROCHLORIDE
     Route: 065
     Dates: start: 20150626, end: 20150701
  2. HELICID [Concomitant]
     Active Substance: OMEPRAZOLE
     Indication: GASTRIC ULCER
     Route: 065
     Dates: start: 20150626, end: 20150701
  3. ATORVOX [Concomitant]
     Active Substance: ATORVASTATIN
     Indication: HYPERLIPIDAEMIA
     Route: 065
     Dates: start: 20150814
  4. PERTUZUMAB. [Suspect]
     Active Substance: PERTUZUMAB
     Indication: HER-2 POSITIVE BREAST CANCER
     Dosage: LOADING DOSE
     Route: 042
     Dates: start: 20150505
  5. CIPRONEX [Concomitant]
     Active Substance: CIPROFLOXACIN
     Indication: INFECTION
  6. PANTOPRAZOLE [Concomitant]
     Active Substance: PANTOPRAZOLE
     Indication: HEPATIC FUNCTION ABNORMAL
     Route: 065
     Dates: start: 20150530, end: 20150605
  7. NO-SPA [Concomitant]
     Active Substance: DROTAVERINE HYDROCHLORIDE
     Route: 065
     Dates: start: 20150530, end: 20150601
  8. NEUROVIT (POLAND) [Concomitant]
     Indication: POLYNEUROPATHY
     Route: 065
     Dates: start: 20150717
  9. LAKCID [Concomitant]
     Active Substance: LACTOBACILLUS ACIDOPHILUS
     Route: 065
     Dates: start: 20150530, end: 20150605
  10. CIPRONEX [Concomitant]
     Active Substance: CIPROFLOXACIN
     Indication: PROPHYLAXIS
     Route: 065
     Dates: start: 20150530, end: 20150605
  11. PANTOPRAZOLE [Concomitant]
     Active Substance: PANTOPRAZOLE
     Indication: GASTRIC ULCER
  12. POLFILIN [Concomitant]
     Active Substance: PENTOXIFYLLINE
     Indication: POLYNEUROPATHY
     Route: 065
     Dates: start: 20150717
  13. THIOCODIN (POLAND) [Concomitant]
     Indication: COUGH
     Route: 065
     Dates: start: 20150630, end: 20150701
  14. MAGNEZIN (POLAND) [Concomitant]
     Route: 065
     Dates: start: 20150814
  15. PERTUZUMAB. [Suspect]
     Active Substance: PERTUZUMAB
     Dosage: MAINTAINANCE DOSE?DATE OF MOST RECENT DOSE OF PERTUZUMAB PRIOR TO EVENT (THROMBOCYTOPENIA): 26/MAY/2
     Route: 042
     Dates: start: 20150526
  16. EUTHYROX [Concomitant]
     Active Substance: LEVOTHYROXINE SODIUM
     Indication: HYPOTHYROIDISM
     Route: 065
     Dates: start: 201411
  17. ESSENTIALE FORTE [Concomitant]
     Indication: HEPATIC FUNCTION ABNORMAL
     Route: 065
     Dates: start: 20150530
  18. DEXAVEN [Concomitant]
     Active Substance: DEXAMETHASONE
     Indication: THROMBOCYTOPENIA
     Route: 065
     Dates: start: 20150531, end: 20150601
  19. CONTROLOC [Concomitant]
     Active Substance: PANTOPRAZOLE SODIUM
     Indication: PROPHYLAXIS AGAINST GASTROINTESTINAL ULCER
     Route: 065
     Dates: start: 20150904
  20. PANTOPRAZOLE [Concomitant]
     Active Substance: PANTOPRAZOLE
     Indication: PROPHYLAXIS
  21. METFORMAX [Concomitant]
     Active Substance: METFORMIN HYDROCHLORIDE
     Indication: DIABETES MELLITUS
     Route: 065
     Dates: start: 20150814
  22. TRASTUZUMAB EMTANSINE [Suspect]
     Active Substance: ADO-TRASTUZUMAB EMTANSINE
     Indication: HER-2 POSITIVE BREAST CANCER
     Dosage: DOSE OF LAST TRASTUZUMAB EMTANSINE: 360 MG?DATE OF MOST RECENT DOSE OF TRASTUZUMAB EMTANSINE PRIOR T
     Route: 042
     Dates: start: 20150505
  23. TELMIZEK [Concomitant]
     Indication: HYPERTENSION
     Route: 065
     Dates: start: 201311
  24. ZAFIRON [Concomitant]
     Indication: DYSPNOEA
     Route: 065
     Dates: start: 20150701
  25. DEXAVEN [Concomitant]
     Active Substance: DEXAMETHASONE
     Indication: DYSPNOEA
     Route: 065
     Dates: start: 20150626, end: 20150701
  26. CYCLOPHOSPHAMIDE. [Suspect]
     Active Substance: CYCLOPHOSPHAMIDE
     Indication: HER-2 POSITIVE BREAST CANCER
     Route: 065
     Dates: start: 20150126
  27. DOXORUBICIN [Suspect]
     Active Substance: DOXORUBICIN
     Indication: HER-2 POSITIVE BREAST CANCER
     Route: 065
     Dates: start: 20150126
  28. HEPAREGEN [Concomitant]
     Indication: HEPATIC FUNCTION ABNORMAL
     Route: 065
     Dates: start: 20150530, end: 20150605
  29. ZAFIRON [Concomitant]
     Indication: DYSPNOEA
     Route: 065
     Dates: start: 20150701
  30. METYPRED [Concomitant]
     Active Substance: METHYLPREDNISOLONE
     Indication: THROMBOCYTOPENIA
     Route: 065
     Dates: start: 20150707

REACTIONS (2)
  - Thrombocytopenia [Recovered/Resolved]
  - Respiratory tract infection [Recovered/Resolved]

NARRATIVE: CASE EVENT DATE: 20150530
